FAERS Safety Report 15254865 (Version 1)
Quarter: 2018Q3

REPORT INFORMATION
  Report Type: Spontaneous
  Country: US (occurrence: US)
  Receive Date: 20180808
  Receipt Date: 20180808
  Transmission Date: 20181010
  Serious: No
  Sender: FDA-Public Use
  Company Number: US-MYLANLABS-2018M1058356

PATIENT
  Sex: Male
  Weight: 101 kg

DRUGS (1)
  1. CLONIDINE TRANSDERMAL SYSTEM [Suspect]
     Active Substance: CLONIDINE
     Indication: HYPERTENSION
     Dosage: 2 MG, UNK
     Route: 062

REACTIONS (4)
  - Product adhesion issue [Unknown]
  - Application site rash [Not Recovered/Not Resolved]
  - Application site erythema [Unknown]
  - Application site irritation [Not Recovered/Not Resolved]
